FAERS Safety Report 10763073 (Version 1)
Quarter: 2015Q1

REPORT INFORMATION
  Report Type: Spontaneous
  Country: JP (occurrence: JP)
  Receive Date: 20150204
  Receipt Date: 20150204
  Transmission Date: 20150721
  Serious: Yes (Hospitalization)
  Sender: FDA-Public Use
  Company Number: JP-MYLANLABS-2015M1003065

PATIENT

DRUGS (4)
  1. DEXAMETHASONE. [Suspect]
     Active Substance: DEXAMETHASONE
     Dosage: 13.2MG ON DAY 2
     Route: 065
  2. CISPLATIN. [Concomitant]
     Active Substance: CISPLATIN
     Dosage: 63.5 MG; ADMINISTERED ON DAY 1
     Route: 065
  3. PACLITAXEL. [Concomitant]
     Active Substance: PACLITAXEL
     Dosage: 63.5 MG ADMINISTERED WITH CISPLATIN ON DAY 1; AND THE ALONE ON DAYS 8 AND 5
     Route: 065
  4. DEXAMETHASONE. [Suspect]
     Active Substance: DEXAMETHASONE
     Indication: CERVIX CARCINOMA
     Dosage: 16.5MG ON DAYS 1, 8 AND 15
     Route: 065

REACTIONS (4)
  - Strongyloidiasis [Recovered/Resolved]
  - Vomiting [Unknown]
  - Acute respiratory distress syndrome [Recovering/Resolving]
  - Diarrhoea [Unknown]
